FAERS Safety Report 5179985-4 (Version None)
Quarter: 2006Q4

REPORT INFORMATION
  Report Type: 
  Country: None (occurrence: None)
  Receive Date: 20061219
  Receipt Date: 20061021
  Transmission Date: 20070319
  Serious: No
  Sender: FDA-Public Use
  Company Number: US-AMGEN-KDL197765

PATIENT
  Sex: Female

DRUGS (3)
  1. ENBREL [Suspect]
     Indication: RHEUMATOID ARTHRITIS
     Route: 058
     Dates: start: 20051013
  2. SULFASALAZINE [Concomitant]
     Route: 048
     Dates: start: 20041201
  3. METHOTREXATE [Concomitant]
     Route: 048
     Dates: start: 20050101

REACTIONS (1)
  - BACK PAIN [None]
